FAERS Safety Report 12350026 (Version 1)
Quarter: 2016Q2

REPORT INFORMATION
  Report Type: Spontaneous
  Country: US (occurrence: None)
  Receive Date: 20160509
  Receipt Date: 20160509
  Transmission Date: 20160815
  Serious: Yes (Death)
  Sender: FDA-Public Use
  Company Number: None

PATIENT
  Age: 66 Year
  Sex: Male

DRUGS (21)
  1. SIROLIMUS. [Concomitant]
     Active Substance: SIROLIMUS
  2. FLECAINIDE [Concomitant]
     Active Substance: FLECAINIDE
  3. PREDNISONE. [Concomitant]
     Active Substance: PREDNISONE
  4. MULTI-VITE [Concomitant]
  5. TYLENOL PM [Concomitant]
     Active Substance: ACETAMINOPHEN\DIPHENHYDRAMINE
  6. LEVOTHYROXIN [Concomitant]
     Active Substance: LEVOTHYROXINE
  7. MAGN OXIDE [Concomitant]
  8. PRADAXA [Concomitant]
     Active Substance: DABIGATRAN ETEXILATE MESYLATE
  9. OXYCODONE [Concomitant]
     Active Substance: OXYCODONE
  10. SELENIUM [Concomitant]
     Active Substance: SELENIUM
  11. BACTRIM [Concomitant]
     Active Substance: SULFAMETHOXAZOLE\TRIMETHOPRIM
  12. BENADRYL [Concomitant]
     Active Substance: DIPHENHYDRAMINE HYDROCHLORIDE
  13. LASIX [Concomitant]
     Active Substance: FUROSEMIDE
  14. EXJADE [Suspect]
     Active Substance: DEFERASIROX
     Indication: MINERAL METABOLISM DISORDER
     Route: 048
     Dates: start: 20151103, end: 20160505
  15. ATORVASTATIN [Concomitant]
     Active Substance: ATORVASTATIN
  16. FOLIC ACID. [Concomitant]
     Active Substance: FOLIC ACID
  17. TYLENOL [Concomitant]
     Active Substance: ACETAMINOPHEN
  18. VITAMIN D3 [Concomitant]
     Active Substance: CHOLECALCIFEROL
  19. OMEPRAZOLE. [Concomitant]
     Active Substance: OMEPRAZOLE
  20. ROPINIROLE. [Concomitant]
     Active Substance: ROPINIROLE
  21. ACYCLOVIR. [Concomitant]
     Active Substance: ACYCLOVIR

REACTIONS (1)
  - Cardiac arrest [None]

NARRATIVE: CASE EVENT DATE: 20160505
